FAERS Safety Report 10335444 (Version 13)
Quarter: 2018Q3

REPORT INFORMATION
  Report Type: Spontaneous
  Country: JP (occurrence: JP)
  Receive Date: 20140723
  Receipt Date: 20180814
  Transmission Date: 20181010
  Serious: Yes (Hospitalization)
  Sender: FDA-Public Use
  Company Number: PHHY2014JP089666

PATIENT
  Age: 59 Year
  Sex: Male
  Weight: 75 kg

DRUGS (16)
  1. BASILIXIMAB [Suspect]
     Active Substance: BASILIXIMAB
     Indication: GLOMERULONEPHRITIS CHRONIC
  2. CELLCEPT [Suspect]
     Active Substance: MYCOPHENOLATE MOFETIL\MYCOPHENOLATE MOFETIL HYDROCHLORIDE
     Indication: RENAL TRANSPLANT
     Dosage: 1000 MG, UNK
     Route: 048
     Dates: start: 201101
  3. CERTICAN [Suspect]
     Active Substance: EVEROLIMUS
     Indication: RENAL TRANSPLANT
     Dosage: 0.5 MG, QD
     Route: 048
     Dates: start: 20130122, end: 20140527
  4. BASILIXIMAB [Suspect]
     Active Substance: BASILIXIMAB
     Indication: RENAL TRANSPLANT
     Route: 065
  5. CICLOSPORIN [Suspect]
     Active Substance: CYCLOSPORINE
     Indication: GLOMERULONEPHRITIS CHRONIC
  6. MYCOPHENOLATE MOFETIL. [Suspect]
     Active Substance: MYCOPHENOLATE MOFETIL
     Indication: RENAL TRANSPLANT
     Route: 065
  7. DIOVAN [Concomitant]
     Active Substance: VALSARTAN
     Indication: HYPERTENSION
     Dosage: 40 MG, UNK
     Route: 048
  8. MEDROL [Concomitant]
     Active Substance: METHYLPREDNISOLONE
     Indication: RENAL TRANSPLANT
     Dosage: 2 MG, UNK
     Route: 048
     Dates: start: 201101
  9. URIEF [Concomitant]
     Active Substance: SILODOSIN
     Indication: BENIGN PROSTATIC HYPERPLASIA
     Dosage: 8 MG, UNK
     Route: 048
     Dates: start: 201105
  10. CERTICAN [Suspect]
     Active Substance: EVEROLIMUS
     Indication: GLOMERULONEPHRITIS CHRONIC
     Dosage: 0.25 MG, BID
     Route: 048
     Dates: start: 20130122, end: 20140527
  11. CELLCEPT [Suspect]
     Active Substance: MYCOPHENOLATE MOFETIL\MYCOPHENOLATE MOFETIL HYDROCHLORIDE
     Indication: IMMUNOSUPPRESSION
  12. GRACEPTOR [Concomitant]
     Active Substance: TACROLIMUS
     Indication: RENAL TRANSPLANT
     Dosage: 70 MG, UNK
     Route: 048
  13. NEORAL [Concomitant]
     Active Substance: CYCLOSPORINE
     Indication: RENAL TRANSPLANT
     Dosage: 70 MG, UNK
     Route: 048
     Dates: start: 201101
  14. CICLOSPORIN [Suspect]
     Active Substance: CYCLOSPORINE
     Indication: RENAL TRANSPLANT
     Route: 065
  15. MYCOPHENOLATE MOFETIL. [Suspect]
     Active Substance: MYCOPHENOLATE MOFETIL
     Indication: GLOMERULONEPHRITIS CHRONIC
  16. ALLOPURINOL. [Concomitant]
     Active Substance: ALLOPURINOL
     Indication: HYPERURICAEMIA
     Dosage: 100 MG, UNK
     Route: 048

REACTIONS (19)
  - Haemoglobin decreased [Unknown]
  - Computerised tomogram thorax abnormal [Unknown]
  - Asthma [Unknown]
  - Productive cough [Unknown]
  - Pyrexia [Recovering/Resolving]
  - Atypical mycobacterial pneumonia [Unknown]
  - Interstitial lung disease [Unknown]
  - Platelet count decreased [Unknown]
  - Pneumonia [Recovered/Resolved]
  - Red blood cell count decreased [Unknown]
  - Dyspnoea [Recovering/Resolving]
  - Respiratory distress [Recovered/Resolved]
  - Atypical pneumonia [Unknown]
  - Nasopharyngitis [Unknown]
  - Pulmonary fibrosis [Recovering/Resolving]
  - Pneumonia chlamydial [Unknown]
  - Pneumocystis jirovecii pneumonia [Unknown]
  - Upper respiratory tract inflammation [Not Recovered/Not Resolved]
  - Haematocrit decreased [Unknown]

NARRATIVE: CASE EVENT DATE: 20140513
